FAERS Safety Report 5078406-X (Version None)
Quarter: 2006Q3

REPORT INFORMATION
  Report Type: 
  Country: None (occurrence: None)
  Receive Date: 20060808
  Receipt Date: 20060724
  Transmission Date: 20061208
  Serious: Yes (Life-Threatening, Other)
  Sender: FDA-Public Use
  Company Number: JP200606005866

PATIENT
  Age: 75 Year
  Sex: Female
  Weight: 50.8 kg

DRUGS (10)
  1. GEMZAR [Suspect]
     Indication: URETHRAL CANCER
     Dosage: 2800 MG, INTRAVENOUS; SEE IMAGE
     Route: 042
     Dates: start: 20050116, end: 20050116
  2. GEMZAR [Suspect]
     Indication: URETHRAL CANCER
     Dosage: 2800 MG, INTRAVENOUS; SEE IMAGE
     Route: 042
     Dates: start: 20050804, end: 20050804
  3. GEMZAR [Suspect]
     Indication: URETHRAL CANCER
     Dosage: 2800 MG, INTRAVENOUS; SEE IMAGE
     Route: 042
     Dates: start: 20050822, end: 20050822
  4. GEMZAR [Suspect]
     Indication: URETHRAL CANCER
     Dosage: 2800 MG, INTRAVENOUS; SEE IMAGE
     Route: 042
     Dates: start: 20060203, end: 20060203
  5. TAXOL [Concomitant]
  6. TAXOTERE [Concomitant]
  7. SLOW-K [Concomitant]
  8. NEO-MINOPHAGEN C (GLYCYRRHIZIC ACID, AMMONIUM SALT) [Concomitant]
  9. KYTRIL [Concomitant]
  10. DECADRON [Concomitant]

REACTIONS (7)
  - BLOOD GLUCOSE INCREASED [None]
  - HAEMATOCRIT DECREASED [None]
  - PANCREATIC DUCT DILATATION [None]
  - PANCREATITIS [None]
  - PLATELET COUNT DECREASED [None]
  - PNEUMONITIS [None]
  - VULVAL CANCER [None]
